FAERS Safety Report 6634402-X (Version None)
Quarter: 2010Q1

REPORT INFORMATION
  Report Type: 
  Country: None (occurrence: None)
  Receive Date: 20100315
  Receipt Date: 20100301
  Transmission Date: 20100710
  Serious: Yes (Hospitalization)
  Sender: FDA-Public Use
  Company Number: HU-ROCHE-684224

PATIENT
  Sex: Male
  Weight: 64 kg

DRUGS (13)
  1. BEVACIZUMAB [Suspect]
     Indication: NON-SMALL CELL LUNG CANCER
     Dosage: FORM: INFUSION
     Route: 042
     Dates: start: 20091117
  2. GEMCITABINE [Suspect]
     Indication: NON-SMALL CELL LUNG CANCER
     Dosage: FORM :INFUSION,LAST DOSE PRIOR TO SAE: 03 FEBRUARY 2010.
     Route: 042
     Dates: start: 20091117
  3. CARBOPLATIN [Suspect]
     Indication: NON-SMALL CELL LUNG CANCER
     Dosage: FORM: INFUSION, LAST DOSE PRIOR TO SAE 06 JANUARY 2010
     Route: 042
     Dates: start: 20091117
  4. TRAMADOL HCL [Concomitant]
     Dates: start: 20091024, end: 20091119
  5. TRAMADOL HCL [Concomitant]
     Dates: start: 20091030
  6. FRAGMIN [Concomitant]
     Indication: THROMBOSIS PROPHYLAXIS
     Dates: start: 20091024, end: 20091125
  7. KALIUM-R [Concomitant]
     Dates: start: 20091106
  8. BISOBLOCK [Concomitant]
     Indication: HYPERTENSION
     Dates: start: 20090820
  9. NEORECORMON [Concomitant]
     Indication: ANAEMIA
     Dates: start: 20100113
  10. FERRO-FOLGAMMA [Concomitant]
     Indication: ANAEMIA
     Dates: start: 20091221
  11. HYGROTON [Concomitant]
     Indication: HYPERTENSION
     Dates: start: 20090820, end: 20091118
  12. MEGALIA [Concomitant]
     Indication: CACHEXIA
     Dates: start: 20091102
  13. FURON [Concomitant]
     Indication: HYPERTENSION
     Dates: start: 20091106

REACTIONS (3)
  - ANAEMIA [None]
  - EPISTAXIS [None]
  - THROMBOCYTOPENIA [None]
